FAERS Safety Report 6583917-1 (Version None)
Quarter: 2010Q1

REPORT INFORMATION
  Report Type: 
  Country: None (occurrence: None)
  Receive Date: 20100213
  Receipt Date: 20100213
  Transmission Date: 20100710
  Serious: Yes (Life-Threatening, Hospitalization, Other)
  Sender: FDA-Public Use
  Company Number: None

PATIENT
  Age: 40 Year
  Sex: Female
  Weight: 109.7705 kg

DRUGS (1)
  1. NUVARING [Suspect]
     Indication: CONTRACEPTION
     Dosage: ONCE A MONTH VAG
     Route: 067
     Dates: start: 20070108, end: 20090713

REACTIONS (5)
  - ANOXIA [None]
  - CARDIAC ARREST [None]
  - COMA [None]
  - HYPOXIA [None]
  - PULMONARY EMBOLISM [None]
